FAERS Safety Report 15671004 (Version 1)
Quarter: 2018Q4

REPORT INFORMATION
  Report Type: Spontaneous
  Country: US (occurrence: US)
  Receive Date: 20181129
  Receipt Date: 20181129
  Transmission Date: 20190205
  Serious: No
  Sender: FDA-Public Use
  Company Number: US-PFIZER INC-2018486834

PATIENT
  Age: 66 Year
  Sex: Female

DRUGS (2)
  1. BOSULIF [Suspect]
     Active Substance: BOSUTINIB MONOHYDRATE
     Indication: BREAST CANCER
     Dosage: 500 MG, DAILY (WITH FOOD)
     Route: 048
     Dates: start: 201810
  2. BOSULIF [Suspect]
     Active Substance: BOSUTINIB MONOHYDRATE
     Indication: CHRONIC MYELOID LEUKAEMIA

REACTIONS (4)
  - Nausea [Unknown]
  - Product used for unknown indication [Unknown]
  - Rash [Unknown]
  - Urticaria [Unknown]
